FAERS Safety Report 6511099-0 (Version None)
Quarter: 2009Q4

REPORT INFORMATION
  Report Type: 
  Country: None (occurrence: None)
  Receive Date: 20091222
  Receipt Date: 20091211
  Transmission Date: 20100525
  Serious: Yes (Death, Hospitalization)
  Sender: FDA-Public Use
  Company Number: ES-ELI_LILLY_AND_COMPANY-ES200912003061

PATIENT
  Age: 6 Year
  Sex: Male

DRUGS (3)
  1. STRATTERA [Suspect]
     Indication: ATTENTION DEFICIT/HYPERACTIVITY DISORDER
     Dosage: 25 MG, UNKNOWN
     Route: 048
     Dates: end: 20090929
  2. DEPAKENE [Concomitant]
     Indication: EPILEPSY
     Dosage: UNK, UNKNOWN
     Route: 065
     Dates: end: 20090929
  3. TOPAMAX [Concomitant]
     Indication: EPILEPSY
     Dosage: UNK, UNKNOWN
     Route: 065
     Dates: end: 20090929

REACTIONS (3)
  - CARDIOPULMONARY FAILURE [None]
  - COMA [None]
  - EPILEPSY [None]
